FAERS Safety Report 16102902 (Version 1)
Quarter: 2019Q1

REPORT INFORMATION
  Report Type: Spontaneous
  Country: US (occurrence: US)
  Receive Date: 20190321
  Receipt Date: 20190321
  Transmission Date: 20190418
  Serious: No
  Sender: FDA-Public Use
  Company Number: US-SHIRE-US201908739

PATIENT
  Sex: Female

DRUGS (1)
  1. ADDERALL XR [Suspect]
     Active Substance: AMPHETAMINE ASPARTATE\AMPHETAMINE SULFATE\DEXTROAMPHETAMINE SACCHARATE\DEXTROAMPHETAMINE SULFATE
     Indication: PRODUCT USED FOR UNKNOWN INDICATION
     Dosage: 5 MILLIGRAM, 3X/DAY:TID
     Route: 048
     Dates: start: 20190205

REACTIONS (2)
  - Heart rate increased [Unknown]
  - Blood pressure increased [Unknown]

NARRATIVE: CASE EVENT DATE: 201902
